FAERS Safety Report 5624480-9 (Version None)
Quarter: 2008Q1

REPORT INFORMATION
  Report Type: 
  Country: None (occurrence: None)
  Receive Date: 20080213
  Receipt Date: 20080201
  Transmission Date: 20080703
  Serious: Yes (Death)
  Sender: FDA-Public Use
  Company Number: GB-AMGEN-UK264150

PATIENT
  Sex: Female

DRUGS (4)
  1. PANITUMUMAB - OBSERVATION/NO DRUG [Suspect]
     Indication: COLORECTAL CANCER
  2. OXALIPLATIN [Concomitant]
     Dates: start: 20070301, end: 20070517
  3. LEUCOVORIN CALCIUM [Concomitant]
     Dates: start: 20070301, end: 20070517
  4. FLUOROURACIL [Concomitant]
     Dates: start: 20070301, end: 20070517

REACTIONS (1)
  - MALIGNANT NEOPLASM PROGRESSION [None]
